FAERS Safety Report 5626506-5 (Version None)
Quarter: 2008Q1

REPORT INFORMATION
  Report Type: 
  Country: None (occurrence: None)
  Receive Date: 20080214
  Receipt Date: 20080208
  Transmission Date: 20080703
  Serious: Yes (Hospitalization)
  Sender: FDA-Public Use
  Company Number: AU-ASTRAZENECA-2008AC00423

PATIENT
  Age: 85 Year
  Sex: Female

DRUGS (9)
  1. QUETIAPINE FUMARATE [Suspect]
     Indication: PSYCHOTIC BEHAVIOUR
     Route: 048
  2. SERTRALINE [Concomitant]
  3. DONEPEZIL HCL [Concomitant]
  4. OMEPRAZOLE [Concomitant]
  5. TIOTROPIUM [Concomitant]
  6. ALBUTEROL [Concomitant]
  7. DILTIAZEM [Concomitant]
  8. FUROSEMIDE [Concomitant]
  9. ASPIRIN [Concomitant]

REACTIONS (1)
  - NEUTROPENIA [None]
